FAERS Safety Report 15226537 (Version 12)
Quarter: 2024Q1

REPORT INFORMATION
  Report Type: Other
  Country: DE (occurrence: None)
  Receive Date: 20180801
  Receipt Date: 20240116
  Transmission Date: 20240410
  Serious: Yes (Hospitalization, Other)
  Sender: FDA-Public Use
  Company Number: DE-ROCHE-2162785

PATIENT
  Age: 49 Year
  Sex: Female

DRUGS (7)
  1. OCREVUS [Suspect]
     Active Substance: OCRELIZUMAB
     Indication: Primary progressive multiple sclerosis
     Dosage: SUBSEQUENT DOSE ON 21/DEC/2017
     Route: 042
     Dates: start: 20171207
  2. OCREVUS [Suspect]
     Active Substance: OCRELIZUMAB
     Dosage: END DATE: 11/NOV/2019
     Route: 042
     Dates: start: 20180601, end: 20191111
  3. AMOXICILLIN [Suspect]
     Active Substance: AMOXICILLIN
     Indication: Product used for unknown indication
     Route: 065
  4. CHOLECALCIFEROL [Concomitant]
     Active Substance: CHOLECALCIFEROL
  5. DESOGESTREL [Concomitant]
     Active Substance: DESOGESTREL
     Dosage: DESOGRESTEL ARISTO
  6. NABIXIMOLS [Concomitant]
     Active Substance: NABIXIMOLS
     Dosage: SPRAY
  7. PANTOPRAZOLE SODIUM [Concomitant]
     Active Substance: PANTOPRAZOLE SODIUM

REACTIONS (34)
  - Pyrexia [Recovered/Resolved]
  - Diarrhoea [Recovered/Resolved]
  - Asthenia [Recovered/Resolved]
  - Decreased appetite [Recovered/Resolved]
  - Food aversion [Recovered/Resolved]
  - Oesophageal infection [Recovered/Resolved]
  - Colitis [Recovered/Resolved]
  - Dehydration [Recovered/Resolved]
  - C-reactive protein increased [Recovered/Resolved]
  - Nasopharyngitis [Recovered/Resolved]
  - Atonic urinary bladder [Recovered/Resolved]
  - Gait disturbance [Not Recovered/Not Resolved]
  - Hypoaesthesia [Recovered/Resolved]
  - Pain [Not Recovered/Not Resolved]
  - Erythema [Not Recovered/Not Resolved]
  - Peripheral swelling [Recovered/Resolved]
  - Feeling hot [Not Recovered/Not Resolved]
  - Pain in extremity [Not Recovered/Not Resolved]
  - Balance disorder [Unknown]
  - Fall [Unknown]
  - Wound haemorrhage [Recovered/Resolved]
  - Fungal skin infection [Recovered/Resolved]
  - Hot flush [Recovered/Resolved]
  - Blood pressure increased [Recovered/Resolved]
  - Foot fracture [Recovered/Resolved with Sequelae]
  - Joint stiffness [Recovered/Resolved]
  - Dyspepsia [Recovered/Resolved]
  - Peripheral swelling [Recovered/Resolved]
  - Erythema [Recovered/Resolved]
  - Drug intolerance [Unknown]
  - Psoriasis [Not Recovered/Not Resolved]
  - Hand fracture [Recovered/Resolved with Sequelae]
  - Muscle spasticity [Not Recovered/Not Resolved]
  - Foot deformity [Not Recovered/Not Resolved]

NARRATIVE: CASE EVENT DATE: 20171207
